FAERS Safety Report 8483223-4 (Version None)
Quarter: 2012Q3

REPORT INFORMATION
  Report Type: 
  Country: None (occurrence: None)
  Receive Date: 20120702
  Receipt Date: 20120628
  Transmission Date: 20120928
  Serious: Yes (Other)
  Sender: FDA-Public Use
  Company Number: AU-TEVA-336534USA

PATIENT
  Sex: Male
  Weight: 89 kg

DRUGS (16)
  1. TREANDA [Suspect]
     Dosage: EVERY 21 DAYS ON DAYS 1 AND DAY 2
     Route: 042
     Dates: start: 20120227
  2. INSULIN ASPART [Concomitant]
  3. INSULIN ASPART [Concomitant]
  4. ASPIRIN [Concomitant]
     Dates: start: 20040101
  5. TREANDA [Suspect]
     Dosage: UID/QD
     Route: 042
     Dates: start: 20120411
  6. ATORVASTATIN [Concomitant]
  7. DEXAMETHASONE [Concomitant]
     Dates: start: 20120227
  8. PALONOSETRON [Concomitant]
  9. TREANDA [Suspect]
     Dosage: UID/QD
     Route: 042
     Dates: start: 20120319, end: 20120320
  10. LOPERAMIDE [Concomitant]
     Dates: start: 20120618
  11. INSULIN ASPART [Concomitant]
  12. METFORMIN HCL [Concomitant]
  13. GLICLAZIDE [Concomitant]
  14. MAGNESIUM SULFATE [Concomitant]
     Dates: start: 20120508, end: 20120508
  15. TREANDA [Suspect]
     Dosage: UID/QD
     Route: 042
     Dates: start: 20120529
  16. ENOXAPARIN SODIUM [Concomitant]

REACTIONS (1)
  - ATRIAL FIBRILLATION [None]
